FAERS Safety Report 21387684 (Version 1)
Quarter: 2022Q3

REPORT INFORMATION
  Report Type: Spontaneous
  Country: GB (occurrence: GB)
  Receive Date: 20220928
  Receipt Date: 20220928
  Transmission Date: 20221027
  Serious: Yes (Hospitalization, Other)
  Sender: FDA-Public Use
  Company Number: None

PATIENT
  Age: 8 Year
  Sex: Female

DRUGS (26)
  1. AFINITOR [Suspect]
     Active Substance: EVEROLIMUS
     Indication: Brain stem glioma
     Dosage: UNK (5 MG MONDAY/WEDNESDAY/FRIDAY AND 2.5 MG TUESDAY/THURSDAY/SATURDAY/SUNDAY)
     Route: 048
     Dates: start: 20200213
  2. AFINITOR [Suspect]
     Active Substance: EVEROLIMUS
     Dosage: UNK (5 MG MONDAY/WEDNESDAY/FRIDAY AND 2.5 MG TUESDAY/THURSDAY/SATURDAY/SUNDAY)
     Route: 048
     Dates: start: 20200212
  3. AFINITOR [Suspect]
     Active Substance: EVEROLIMUS
     Dosage: 5 MG MONDAY/WEDNESDAY/FRIDAY AND 2.5 MG TUESDAY/THURSDAY/SATURDAY/SUNDAY
     Route: 048
     Dates: start: 20200207
  4. AFINITOR [Suspect]
     Active Substance: EVEROLIMUS
     Dosage: 2.5 MG ON TUESDAY,THURSDAY,SATURDAY AND SUNDAYUNK
     Route: 048
     Dates: start: 20210207
  5. AFINITOR [Suspect]
     Active Substance: EVEROLIMUS
     Dosage: 2.5 MILLIGRAM, QD TUESDAY, THURSDAY, SATURDAY AND SUNDAY AND  MG, QD ON MONDAY, WEDNESDAY AND FRIDAY
     Route: 048
     Dates: start: 20191001
  6. AFINITOR [Suspect]
     Active Substance: EVEROLIMUS
     Dosage: UNK (5 MG MONDAY/WEDNESDAY/FRIDAY AND 2.5 MG)
     Route: 048
     Dates: start: 20200212
  7. AFINITOR [Suspect]
     Active Substance: EVEROLIMUS
     Dosage: UNK (5 MG MONDAY TO SATURDAY AND 2.5 MG SUNDAY)
     Route: 048
     Dates: start: 20190717, end: 20191014
  8. AFINITOR [Suspect]
     Active Substance: EVEROLIMUS
     Dosage: UNK (5 MG MONDAY/WEDNESDAY/FRIDAY AND 2.5 MG TUESDAY/THURSDAY/SATURDAY/SUNDAY)
     Route: 048
     Dates: start: 20190717, end: 20200207
  9. AFINITOR [Suspect]
     Active Substance: EVEROLIMUS
     Dosage: UNK (5 MG MONDAY/WEDNESDAY/FRIDAY AND 2.5 MG TUESDAY/THURSDAY/SATURDAY/SUNDAY)
     Route: 048
     Dates: start: 20190718, end: 20200207
  10. AFINITOR [Suspect]
     Active Substance: EVEROLIMUS
     Dosage: UNK (5 MG MONDAY TO SATURDAY AND 2.5 MG SUNDAY)
     Route: 048
     Dates: start: 20190717, end: 20200207
  11. DEXAMETHASONE [Suspect]
     Active Substance: DEXAMETHASONE
     Indication: Product used for unknown indication
     Dosage: 3.5 MG, QD
     Route: 048
     Dates: start: 20200212
  12. DEXAMETHASONE [Suspect]
     Active Substance: DEXAMETHASONE
     Dosage: 1.6 MG, QD
     Route: 048
     Dates: start: 20200215, end: 20200221
  13. DEXAMETHASONE [Suspect]
     Active Substance: DEXAMETHASONE
     Dosage: 9.2 MG, QD (4.6 MG, BID)
     Route: 048
     Dates: start: 20200207, end: 20200221
  14. DEXAMETHASONE [Suspect]
     Active Substance: DEXAMETHASONE
     Dosage: 7 MG, QD (3.5 MG, BID)
     Route: 048
     Dates: start: 20200210
  15. LANSOPRAZOLE [Suspect]
     Active Substance: LANSOPRAZOLE
     Indication: Gastrooesophageal reflux disease
     Dosage: UNK
     Route: 065
  16. LANSOPRAZOLE [Suspect]
     Active Substance: LANSOPRAZOLE
     Indication: Product used for unknown indication
  17. LOPERAMIDE HYDROCHLORIDE [Suspect]
     Active Substance: LOPERAMIDE HYDROCHLORIDE
     Indication: Prophylaxis
     Dosage: 2 MG, 1 CAPSULE UP TO 4 TIMES A DAY
     Route: 065
  18. ACETAMINOPHEN [Suspect]
     Active Substance: ACETAMINOPHEN
     Indication: Product used for unknown indication
     Dosage: UNK UNK, QD PM
     Route: 048
  19. RANITIDINE HYDROCHLORIDE [Suspect]
     Active Substance: RANITIDINE HYDROCHLORIDE
     Indication: Gastrooesophageal reflux disease
     Dosage: 50 MG, BID
     Route: 048
     Dates: start: 20191018
  20. RANITIDINE HYDROCHLORIDE [Suspect]
     Active Substance: RANITIDINE HYDROCHLORIDE
     Dosage: UNK, BID
     Route: 048
  21. VANDETANIB [Suspect]
     Active Substance: VANDETANIB
     Indication: Brain stem glioma
     Dosage: 100 MG, QOD
     Route: 048
     Dates: start: 20191018, end: 20200207
  22. VANDETANIB [Suspect]
     Active Substance: VANDETANIB
     Dosage: 65 MILLIGRAM/SQ. METER, QD
     Route: 048
     Dates: start: 20191009, end: 20191014
  23. VANDETANIB [Suspect]
     Active Substance: VANDETANIB
     Dosage: 65 MILLIGRAM/SQ. METER, QD
     Route: 048
     Dates: start: 20200316, end: 20200420
  24. VANDETANIB [Suspect]
     Active Substance: VANDETANIB
     Dosage: 100 MG, QOD (65 MG/M2)
     Route: 048
     Dates: start: 20191009, end: 20191014
  25. VANDETANIB [Suspect]
     Active Substance: VANDETANIB
     Dosage: 100 MG, QOD (54 MILLIGRAM/SQ. METER, QD)
     Route: 048
     Dates: start: 20200212, end: 20200302
  26. COTRIMOXAZOLE [Concomitant]
     Active Substance: SULFAMETHOXAZOLE\TRIMETHOPRIM
     Indication: Product used for unknown indication
     Dosage: 360 MG, BID (7.5 ML) ON SATURDAYS AND SUNDAYS
     Route: 048

REACTIONS (23)
  - Electrocardiogram QT prolonged [Recovered/Resolved]
  - Hemiparesis [Recovered/Resolved]
  - Flatulence [Recovered/Resolved]
  - Hypophosphataemia [Recovered/Resolved]
  - Myoclonus [Recovered/Resolved]
  - Abdominal distension [Recovered/Resolved]
  - Blood cholesterol increased [Not Recovered/Not Resolved]
  - Neutrophil count decreased [Recovered/Resolved]
  - Ocular hyperaemia [Recovered/Resolved]
  - Hypophagia [Not Recovered/Not Resolved]
  - Lymphocyte count decreased [Not Recovered/Not Resolved]
  - Alanine aminotransferase increased [Recovered/Resolved]
  - Blood creatinine increased [Unknown]
  - Facial paralysis [Recovered/Resolved]
  - Hypertension [Recovered/Resolved]
  - Blood triglycerides increased [Unknown]
  - Brain stem glioma [Unknown]
  - Malignant neoplasm progression [Unknown]
  - Reflux gastritis [Recovered/Resolved]
  - Ataxia [Not Recovered/Not Resolved]
  - White blood cell count decreased [Not Recovered/Not Resolved]
  - Gastrooesophageal reflux disease [Recovered/Resolved]
  - Mucosal inflammation [Recovered/Resolved]

NARRATIVE: CASE EVENT DATE: 20190111
